FAERS Safety Report 15144090 (Version 1)
Quarter: 2018Q3

REPORT INFORMATION
  Report Type: Spontaneous
  Country: US (occurrence: US)
  Receive Date: 20180618
  Receipt Date: 20180618
  Transmission Date: 20181010
  Serious: Yes (Hospitalization)
  Sender: FDA-Public Use
  Company Number: None

PATIENT
  Age: 69 Year
  Sex: Male
  Weight: 122.47 kg

DRUGS (1)
  1. DAPTOMYCIN  500MG VIAL [Suspect]
     Active Substance: DAPTOMYCIN
     Indication: CELLULITIS
     Dosage: ?          OTHER FREQUENCY:Q 24 HR ;?
     Route: 042
     Dates: start: 20180331, end: 20180331

REACTIONS (1)
  - Chills [None]

NARRATIVE: CASE EVENT DATE: 20180331
